FAERS Safety Report 7247139-3 (Version None)
Quarter: 2011Q1

REPORT INFORMATION
  Report Type: 
  Country: None (occurrence: None)
  Receive Date: 20110127
  Receipt Date: 20100908
  Transmission Date: 20110831
  Serious: No
  Sender: FDA-Public Use
  Company Number: US-BAUSCH-2010BL005092

PATIENT
  Age: 62 Year
  Sex: Female

DRUGS (3)
  1. THEOPHYLLINE [Concomitant]
  2. ALAWAY [Suspect]
     Route: 047
     Dates: start: 20100905, end: 20100905
  3. ALAWAY [Suspect]
     Indication: EYE ALLERGY
     Route: 047
     Dates: start: 20100819, end: 20100819

REACTIONS (4)
  - ERYTHEMA [None]
  - EYELID OEDEMA [None]
  - SWELLING FACE [None]
  - DRY SKIN [None]
